FAERS Safety Report 11359307 (Version 1)
Quarter: 2015Q3

REPORT INFORMATION
  Report Type: Report from Study
  Country: FR (occurrence: FR)
  Receive Date: 20150807
  Receipt Date: 20150807
  Transmission Date: 20151125
  Serious: Yes (Congenital Anomaly, Other)
  Sender: FDA-Public Use
  Company Number: FR-ABBVIE-15P-056-1437378-00

PATIENT
  Sex: Male

DRUGS (3)
  1. NORVIR [Suspect]
     Active Substance: RITONAVIR
     Indication: MATERNAL EXPOSURE TIMING UNSPECIFIED
     Route: 064
  2. ISENTRESS [Suspect]
     Active Substance: RALTEGRAVIR POTASSIUM
     Indication: MATERNAL EXPOSURE TIMING UNSPECIFIED
     Route: 064
  3. PREZISTA [Suspect]
     Active Substance: DARUNAVIR ETHANOLATE
     Indication: MATERNAL EXPOSURE TIMING UNSPECIFIED
     Route: 064

REACTIONS (10)
  - Hydrocephalus [Unknown]
  - Aqueductal stenosis [Unknown]
  - Hemivertebra [Unknown]
  - Oesophageal atresia [Unknown]
  - Microtia [Unknown]
  - Spine malformation [Unknown]
  - Multiple congenital abnormalities [Unknown]
  - Synostosis [Unknown]
  - Foetal exposure during pregnancy [Unknown]
  - Premature baby [Unknown]
